FAERS Safety Report 11558167 (Version 7)
Quarter: 2016Q2

REPORT INFORMATION
  Report Type: Report from Study
  Country: DE (occurrence: DE)
  Receive Date: 20150928
  Receipt Date: 20160622
  Transmission Date: 20160815
  Serious: Yes (Other)
  Sender: FDA-Public Use
  Company Number: DE-ROCHE-1550141

PATIENT
  Age: 55 Year
  Sex: Female

DRUGS (6)
  1. ROACTEMRA [Suspect]
     Active Substance: TOCILIZUMAB
     Indication: RHEUMATOID ARTHRITIS
     Route: 058
     Dates: start: 20150223, end: 20150930
  2. LEFLUNOMID [Concomitant]
     Active Substance: LEFLUNOMIDE
     Indication: RHEUMATOID ARTHRITIS
     Route: 065
  3. BISOPROLOL COMP [Concomitant]
     Dosage: 5/12.5
     Route: 065
  4. ATORVASTATIN [Concomitant]
     Active Substance: ATORVASTATIN
     Route: 065
  5. NEBIVOLOL. [Concomitant]
     Active Substance: NEBIVOLOL
     Route: 065
  6. VOLTAREN RESINAT [Concomitant]
     Active Substance: DICLOFENAC
     Dosage: AS REQUIRED
     Route: 065

REACTIONS (9)
  - Abdominal discomfort [Not Recovered/Not Resolved]
  - Tooth erosion [Recovering/Resolving]
  - Aphthous ulcer [Recovered/Resolved]
  - Flatulence [Not Recovered/Not Resolved]
  - Bone erosion [Not Recovered/Not Resolved]
  - Periodontitis [Not Recovered/Not Resolved]
  - Gingival disorder [Recovered/Resolved]
  - Joint swelling [Not Recovered/Not Resolved]
  - Arthralgia [Not Recovered/Not Resolved]

NARRATIVE: CASE EVENT DATE: 201505
